FAERS Safety Report 9043367 (Version 1)
Quarter: 2013Q1

REPORT INFORMATION
  Report Type: Report from Study
  Country: US (occurrence: US)
  Receive Date: 20130129
  Receipt Date: 20130129
  Transmission Date: 20140127
  Serious: No
  Sender: FDA-Public Use
  Company Number: US-ABBOTT-12P-163-0914442-00

PATIENT
  Age: 59 Year
  Sex: Male

DRUGS (6)
  1. HUMIRA 40 MG/0.8 ML PEN [Suspect]
     Indication: CROHN^S DISEASE
     Dates: start: 20120127
  2. IMURAN [Concomitant]
     Indication: CROHN^S DISEASE
  3. ZYRTEC [Concomitant]
     Indication: SINUS DISORDER
     Dosage: DAILY
  4. NASAL SPRAY [Concomitant]
     Indication: SINUS DISORDER
  5. VITAMIN D [Concomitant]
     Indication: VITAMIN SUPPLEMENTATION
     Dosage: 2000 MG DAILY
  6. TUMS ULTRA [Concomitant]
     Indication: BLOOD CALCIUM
     Dosage: AT BEDTIME

REACTIONS (3)
  - Abdominal discomfort [Recovered/Resolved]
  - Abdominal pain upper [Recovered/Resolved]
  - Diarrhoea [Recovered/Resolved]
